FAERS Safety Report 14845793 (Version 2)
Quarter: 2018Q4

REPORT INFORMATION
  Report Type: Spontaneous
  Country: FR (occurrence: FR)
  Receive Date: 20180504
  Receipt Date: 20181026
  Transmission Date: 20190204
  Serious: Yes (Other)
  Sender: FDA-Public Use
  Company Number: FR-MERCK KGAA-2047159

PATIENT
  Age: 50 Year
  Sex: Female

DRUGS (1)
  1. EUTHYROX [Suspect]
     Active Substance: LEVOTHYROXINE SODIUM
     Indication: PRODUCT USED FOR UNKNOWN INDICATION

REACTIONS (16)
  - Loss of personal independence in daily activities [None]
  - Blood triglycerides increased [None]
  - Affective disorder [None]
  - Neutrophil count increased [None]
  - Musculoskeletal stiffness [None]
  - White blood cell count increased [None]
  - Osteoarthritis [None]
  - Pain in extremity [None]
  - Libido decreased [None]
  - Arthralgia [None]
  - Anxiety [None]
  - Unevaluable event [None]
  - Hyperthyroidism [None]
  - Dysstasia [None]
  - Alopecia [None]
  - Fatigue [None]

NARRATIVE: CASE EVENT DATE: 2017
